FAERS Safety Report 5887329-5 (Version None)
Quarter: 2008Q3

REPORT INFORMATION
  Report Type: 
  Country: None (occurrence: None)
  Receive Date: 20080915
  Receipt Date: 20080910
  Transmission Date: 20090109
  Serious: Yes (Death)
  Sender: FDA-Public Use
  Company Number: CLOF-1000278

PATIENT
  Age: 57 Year
  Sex: Male
  Weight: 90 kg

DRUGS (8)
  1. CLOFARABINE (CLOFARABINE) SOLUTION FOR INFUSION [Suspect]
     Indication: ACUTE LYMPHOCYTIC LEUKAEMIA
     Dosage: 425 MG, QDX5, INTRAVENOUS
     Route: 042
     Dates: start: 20080423, end: 20080427
  2. CYTARABINE [Suspect]
     Indication: ACUTE LYMPHOCYTIC LEUKAEMIA
     Dosage: 10600 MG, QDX5, INTRAVENOUS
     Route: 042
     Dates: start: 20080423, end: 20080427
  3. ACYCLOVIR [Concomitant]
  4. DOXYCYCLINE [Concomitant]
  5. LEVAQUIN [Concomitant]
  6. MICAFUNGIN (MICAFUNGIN) [Concomitant]
  7. NOXAFIL [Concomitant]
  8. VORICONAZOLE (VORICONAZOLE) [Concomitant]

REACTIONS (13)
  - ANAEMIA [None]
  - CULTURE THROAT POSITIVE [None]
  - CULTURE URINE POSITIVE [None]
  - DEHYDRATION [None]
  - ESCHERICHIA INFECTION [None]
  - MULTI-ORGAN FAILURE [None]
  - NEUTROPENIC INFECTION [None]
  - ORGANISING PNEUMONIA [None]
  - PARAINFLUENZAE VIRUS INFECTION [None]
  - PERFORMANCE STATUS DECREASED [None]
  - SEPSIS [None]
  - THROMBOCYTOPENIA [None]
  - WHITE BLOOD CELL COUNT DECREASED [None]
